FAERS Safety Report 20023623 (Version 5)
Quarter: 2022Q2

REPORT INFORMATION
  Report Type: Spontaneous
  Country: IN (occurrence: IN)
  Receive Date: 20211102
  Receipt Date: 20220517
  Transmission Date: 20220720
  Serious: Yes (Death, Hospitalization, Other)
  Sender: FDA-Public Use
  Company Number: IN-NOVARTISPH-NVSC2021IN226882

PATIENT
  Age: 31 Year
  Sex: Male
  Weight: 39 kg

DRUGS (7)
  1. CRIZANLIZUMAB [Suspect]
     Active Substance: CRIZANLIZUMAB
     Indication: Sickle cell disease
     Dosage: 100 MG/10 ML
     Route: 065
     Dates: start: 202106
  2. CRIZANLIZUMAB [Suspect]
     Active Substance: CRIZANLIZUMAB
     Dosage: 100 MG/10 ML
     Route: 065
     Dates: start: 202107
  3. CRIZANLIZUMAB [Suspect]
     Active Substance: CRIZANLIZUMAB
     Dosage: 200 MG
     Route: 065
     Dates: start: 20210927
  4. CRIZANLIZUMAB [Suspect]
     Active Substance: CRIZANLIZUMAB
     Dosage: 200 MG
     Route: 042
     Dates: start: 20210712
  5. FOLVITE [Concomitant]
     Active Substance: FOLIC ACID
     Indication: Product used for unknown indication
     Dosage: UNK
     Route: 065
  6. FOLVITE [Concomitant]
     Active Substance: FOLIC ACID
     Dosage: UNK
     Route: 065
  7. SODAMINT [Concomitant]
     Indication: Product used for unknown indication
     Dosage: UNK
     Route: 065

REACTIONS (26)
  - Cardiac arrest [Fatal]
  - Multiple organ dysfunction syndrome [Fatal]
  - Sepsis [Fatal]
  - Septic shock [Fatal]
  - Liver function test abnormal [Fatal]
  - Acidosis [Fatal]
  - Pyrexia [Fatal]
  - Thrombocytopenia [Fatal]
  - White blood cell count increased [Fatal]
  - Haemoglobin decreased [Fatal]
  - Procalcitonin increased [Fatal]
  - Sickle cell anaemia with crisis [Fatal]
  - Loss of consciousness [Unknown]
  - Infusion related reaction [Unknown]
  - Bradycardia [Unknown]
  - Chills [Unknown]
  - Hypotension [Unknown]
  - Vomiting [Unknown]
  - Head discomfort [Unknown]
  - Somnolence [Unknown]
  - Fall [Unknown]
  - General physical health deterioration [Not Recovered/Not Resolved]
  - Pain [Unknown]
  - Abdominal distension [Unknown]
  - Abdominal pain [Unknown]
  - Pruritus [Unknown]

NARRATIVE: CASE EVENT DATE: 20210927
